FAERS Safety Report 7968847-2 (Version None)
Quarter: 2011Q4

REPORT INFORMATION
  Report Type: 
  Country: None (occurrence: None)
  Receive Date: 20111209
  Receipt Date: 20111201
  Transmission Date: 20120403
  Serious: Yes (Other)
  Sender: FDA-Public Use
  Company Number: PHHY2011CH106400

PATIENT
  Age: 7 Year
  Sex: Male

DRUGS (1)
  1. LORAZEPAM [Suspect]
     Dosage: 0.6 MG/KG, UNK
     Route: 042

REACTIONS (3)
  - HYPOVENTILATION [None]
  - BLOOD PRESSURE ABNORMAL [None]
  - RESPIRATORY ACIDOSIS [None]
